FAERS Safety Report 5993333-9 (Version None)
Quarter: 2008Q4

REPORT INFORMATION
  Report Type: 
  Country: None (occurrence: None)
  Receive Date: 20081210
  Receipt Date: 20081210
  Transmission Date: 20090506
  Serious: Yes (Death)
  Sender: FDA-Public Use
  Company Number: None

PATIENT
  Age: 69 Year
  Sex: Male
  Weight: 89.3586 kg

DRUGS (4)
  1. AVASTIN [Suspect]
     Indication: URETERIC CANCER
     Dosage: 1500MG, D1, Q21D: INTRAVENOUS (NOT OTHERWISE SPECIFIED)
     Route: 042
     Dates: start: 20080522, end: 20081124
  2. GEMZAR [Suspect]
     Indication: URETERIC CANCER
     Dosage: 1650MG D1,D8, Q21D: INTRAVENOUS (NOT OTHERWISE SPECIFIED)
     Route: 042
     Dates: start: 20080522, end: 20081124
  3. GEMZAR [Suspect]
     Indication: URETERIC CANCER
     Dosage: 155MG D1, Q2ID: INTRAVENOUS (NOT OTHERWISE SPECIFIED)
     Route: 042
     Dates: start: 20080522, end: 20081124
  4. CISPLATIN [Suspect]
     Dosage: 155MG D1, Q21D: INTRAVENOUS (NOT OTHERWISE SPECIFIED)
     Dates: start: 20080522, end: 20081124

REACTIONS (5)
  - AGONAL RHYTHM [None]
  - CARDIAC ARREST [None]
  - EPISTAXIS [None]
  - FALL [None]
  - PUPIL FIXED [None]
